FAERS Safety Report 14071653 (Version 3)
Quarter: 2019Q1

REPORT INFORMATION
  Report Type: Report from Study
  Country: US (occurrence: US)
  Receive Date: 20171010
  Receipt Date: 20190108
  Transmission Date: 20190417
  Serious: No
  Sender: FDA-Public Use
  Company Number: US-SA-2017SA150460

PATIENT
  Age: 64 Year
  Sex: Male

DRUGS (3)
  1. PREDNISONE. [Concomitant]
     Active Substance: PREDNISONE
     Indication: RASH
     Dosage: UNK UNK,UNK
     Route: 065
  2. DUPILUMAB [Suspect]
     Active Substance: DUPILUMAB
     Indication: DERMATITIS ATOPIC
     Dosage: 600 MG, 1X
     Route: 058
     Dates: start: 20170721, end: 20170721
  3. DUPILUMAB [Suspect]
     Active Substance: DUPILUMAB
     Indication: RASH
     Dosage: 300 MG, QOW
     Route: 058
     Dates: start: 20170804

REACTIONS (7)
  - Hallucination [Unknown]
  - Dermatitis atopic [Unknown]
  - Oral herpes [Recovering/Resolving]
  - Rash [Unknown]
  - Dry skin [Not Recovered/Not Resolved]
  - Scrotal inflammation [Not Recovered/Not Resolved]
  - Rash pruritic [Not Recovered/Not Resolved]

NARRATIVE: CASE EVENT DATE: 2017
